FAERS Safety Report 8113345-9 (Version None)
Quarter: 2012Q1

REPORT INFORMATION
  Report Type: 
  Country: None (occurrence: None)
  Receive Date: 20120203
  Receipt Date: 20120130
  Transmission Date: 20120608
  Serious: Yes (Other)
  Sender: FDA-Public Use
  Company Number: PHEH2011US08325

PATIENT
  Sex: Female

DRUGS (5)
  1. RECLAST [Suspect]
     Dosage: UNK UKN, UNK
     Route: 042
     Dates: start: 20100901
  2. SERTRALINE HYDROCHLORIDE [Concomitant]
     Dosage: 25 MG, TID
  3. CALCIUM [Concomitant]
     Dosage: 600 MG, BID
  4. VITAMIN D [Concomitant]
     Dosage: 400 IU, BID
  5. SIMVASTATIN [Concomitant]
     Dosage: 20 MG, UNK

REACTIONS (2)
  - FALL [None]
  - FEMUR FRACTURE [None]
